FAERS Safety Report 5460265-4 (Version None)
Quarter: 2007Q3

REPORT INFORMATION
  Report Type: 
  Country: None (occurrence: None)
  Receive Date: 20070919
  Receipt Date: 20070809
  Transmission Date: 20080115
  Serious: No
  Sender: FDA-Public Use
  Company Number: US-BRISTOL-MYERS SQUIBB COMPANY-13872973

PATIENT

DRUGS (1)
  1. ABILIFY [Suspect]

REACTIONS (1)
  - INJECTION SITE IRRITATION [None]
